FAERS Safety Report 4449325-4 (Version None)
Quarter: 2004Q3

REPORT INFORMATION
  Report Type: 
  Country: None (occurrence: None)
  Receive Date: 20040909
  Receipt Date: 20040819
  Transmission Date: 20050211
  Serious: Yes (Other)
  Sender: FDA-Public Use
  Company Number: USA040875995

PATIENT
  Sex: Male

DRUGS (5)
  1. HUMULIN 70/30 [Suspect]
     Indication: DIABETES MELLITUS
  2. VIOXX [Concomitant]
  3. METFORMIN [Concomitant]
  4. CYCLOBENZAPRINE HCL [Concomitant]
  5. PLAQUENIL [Concomitant]

REACTIONS (5)
  - AMNESIA [None]
  - FEELING ABNORMAL [None]
  - HYPERHIDROSIS [None]
  - MEDICATION ERROR [None]
  - PHARMACEUTICAL PRODUCT COMPLAINT [None]
